FAERS Safety Report 9841134 (Version 2)
Quarter: 2014Q2

REPORT INFORMATION
  Report Type: Spontaneous
  Country: US (occurrence: US)
  Receive Date: 20140124
  Receipt Date: 20140401
  Transmission Date: 20141212
  Serious: Yes (Other)
  Sender: FDA-Public Use
  Company Number: US-ASTRAZENECA-2014SE04003

PATIENT
  Age: 20797 Day
  Sex: Female
  Weight: 120.2 kg

DRUGS (7)
  1. BRILINTA [Suspect]
     Indication: ACUTE MYOCARDIAL INFARCTION
     Route: 048
     Dates: start: 20140114, end: 20140116
  2. ASPIRIN [Concomitant]
  3. COREG [Concomitant]
  4. EFFIENT [Concomitant]
  5. HCTZ [Concomitant]
  6. LIPITOR [Concomitant]
  7. NITROGLYCERIN [Concomitant]

REACTIONS (3)
  - Electrocardiogram abnormal [Unknown]
  - Sleep apnoea syndrome [Unknown]
  - Crying [Unknown]
